FAERS Safety Report 4405194-X (Version None)
Quarter: 2004Q3

REPORT INFORMATION
  Report Type: 
  Country: None (occurrence: None)
  Receive Date: 20040723
  Receipt Date: 20040709
  Transmission Date: 20050211
  Serious: Yes (Other)
  Sender: FDA-Public Use
  Company Number: 200412377JP

PATIENT
  Age: 46 Year
  Sex: Female

DRUGS (3)
  1. TAXOTERE [Suspect]
     Indication: BREAST CANCER
     Route: 041
     Dates: start: 20000424
  2. RADIATION [Concomitant]
     Indication: BREAST CANCER
     Dates: start: 20000424
  3. KYTRIL [Concomitant]
     Indication: PREMEDICATION
     Dosage: DOSE: 1A
     Route: 041
     Dates: start: 20000424, end: 20000424

REACTIONS (1)
  - RADIATION PNEUMONITIS [None]
